FAERS Safety Report 10577669 (Version 1)
Quarter: 2014Q4

REPORT INFORMATION
  Report Type: Spontaneous
  Country: FR (occurrence: FR)
  Receive Date: 20141111
  Receipt Date: 20141111
  Transmission Date: 20150529
  Serious: Yes (Hospitalization, Other)
  Sender: FDA-Public Use
  Company Number: FR-ASTRAZENECA-2014SE83882

PATIENT
  Age: 25253 Day
  Sex: Male
  Weight: 56 kg

DRUGS (4)
  1. LOXAPAC [Suspect]
     Active Substance: LOXAPINE SUCCINATE
     Indication: AGITATION
     Route: 030
     Dates: start: 20140908, end: 20140908
  2. INEXIUM [Suspect]
     Active Substance: ESOMEPRAZOLE
     Route: 048
     Dates: end: 20140916
  3. VFEND [Suspect]
     Active Substance: VORICONAZOLE
     Indication: CANDIDA INFECTION
     Route: 048
     Dates: start: 201404, end: 20140912
  4. CYMBALTA [Suspect]
     Active Substance: DULOXETINE HYDROCHLORIDE
     Indication: DEPRESSED MOOD
     Route: 048
     Dates: end: 20140912

REACTIONS (18)
  - Pseudobulbar palsy [Unknown]
  - Hypomagnesaemia [Unknown]
  - Toxic encephalopathy [Recovered/Resolved]
  - Dyskinesia [Unknown]
  - Lacunar infarction [Unknown]
  - Dysarthria [Unknown]
  - White matter lesion [Unknown]
  - Gait disturbance [Unknown]
  - Dysphagia [Unknown]
  - Frontotemporal dementia [Unknown]
  - Cerebral atrophy [Unknown]
  - Confusional state [Unknown]
  - Tremor [Unknown]
  - Myoclonus [Recovered/Resolved]
  - Disturbance in attention [Recovered/Resolved]
  - Ataxia [Unknown]
  - Cerebellar syndrome [Unknown]
  - Agitation [Unknown]

NARRATIVE: CASE EVENT DATE: 20140909
